FAERS Safety Report 11975950 (Version 1)
Quarter: 2016Q1

REPORT INFORMATION
  Report Type: Spontaneous
  Country: US (occurrence: None)
  Receive Date: 20160128
  Receipt Date: 20160128
  Transmission Date: 20160526
  Serious: Yes (Death)
  Sender: FDA-Public Use
  Company Number: None

PATIENT
  Age: 29 Year
  Sex: Female

DRUGS (5)
  1. CLONAZEPAM. [Concomitant]
     Active Substance: CLONAZEPAM
  2. CLOZAPINE 100MG [Suspect]
     Active Substance: CLOZAPINE
     Indication: CRANIOCEREBRAL INJURY
     Route: 048
  3. HALDOL [Concomitant]
     Active Substance: HALOPERIDOL
  4. CLOZAPINE 100MG [Suspect]
     Active Substance: CLOZAPINE
     Indication: SCHIZOAFFECTIVE DISORDER
     Route: 048
  5. GUAIFENSIN WITH CODEINE [Concomitant]

REACTIONS (4)
  - Smoking cessation therapy [None]
  - Sinusitis [None]
  - Toxicity to various agents [None]
  - Bronchitis [None]

NARRATIVE: CASE EVENT DATE: 20130407
